FAERS Safety Report 8531245-7 (Version None)
Quarter: 2012Q3

REPORT INFORMATION
  Report Type: 
  Country: None (occurrence: None)
  Receive Date: 20120723
  Receipt Date: 20120710
  Transmission Date: 20120928
  Serious: Yes (Hospitalization, Other)
  Sender: FDA-Public Use
  Company Number: JP-VERTEX PHARMACEUTICALS INC.-AE-2012-005507

PATIENT
  Age: 54 Year
  Sex: Female

DRUGS (14)
  1. RIBAVIRIN [Concomitant]
     Route: 048
     Dates: start: 20120514, end: 20120625
  2. DOGMATYL [Concomitant]
     Route: 048
     Dates: start: 20120111, end: 20120212
  3. LENDORMIN D [Concomitant]
     Route: 048
     Dates: start: 20120111, end: 20120116
  4. RIBAVIRIN [Concomitant]
     Route: 048
     Dates: start: 20120227, end: 20120302
  5. PEGINTERFERON ALFA-2B [Concomitant]
     Indication: HEPATITIS C
     Route: 058
     Dates: start: 20120110, end: 20120227
  6. PEGINTERFERON ALFA-2B [Concomitant]
     Route: 058
     Dates: start: 20120402, end: 20120618
  7. LOXONIN [Concomitant]
     Route: 048
     Dates: start: 20120111, end: 20120116
  8. RABEPRAZOLE SODIUM [Concomitant]
     Route: 048
     Dates: start: 20120119, end: 20120205
  9. TELAVIC (TELAPREVIR) [Suspect]
     Route: 048
     Dates: start: 20120305, end: 20120401
  10. RIBAVIRIN [Concomitant]
     Indication: HEPATITIS C
     Route: 048
     Dates: start: 20120110, end: 20120226
  11. RIBAVIRIN [Concomitant]
     Route: 048
     Dates: start: 20120402, end: 20120513
  12. DOGMATYL [Concomitant]
     Route: 048
  13. PEGINTERFERON ALFA-2B [Concomitant]
     Route: 058
     Dates: start: 20120312, end: 20120326
  14. TELAVIC (TELAPREVIR) [Suspect]
     Indication: HEPATITIS C
     Route: 048
     Dates: start: 20120110, end: 20120304

REACTIONS (3)
  - RENAL IMPAIRMENT [None]
  - DEPRESSION [None]
  - ANAEMIA [None]
